FAERS Safety Report 9681519 (Version 2)
Quarter: 2013Q4

REPORT INFORMATION
  Report Type: Spontaneous
  Country: US (occurrence: US)
  Receive Date: 20131111
  Receipt Date: 20131114
  Transmission Date: 20140711
  Serious: Yes (Other)
  Sender: FDA-Public Use
  Company Number: US-RB-059512-13

PATIENT
  Age: 90 Year
  Sex: Male

DRUGS (6)
  1. MUCINEX DM [Suspect]
     Indication: RESPIRATORY TRACT CONGESTION
     Dosage: PATIENT HAS TAKEN A TOTAL OF 6 TABLETS OVER A 3 DAY PERIOD OF TIME.
     Route: 048
     Dates: start: 20131101
  2. MUCINEX DM [Suspect]
     Indication: RESPIRATORY TRACT CONGESTION
     Dosage: PATIENT HAS TAKEN A TOTAL OF 6 TABLETS OVER A 3 DAY PERIOD OF TIME.
     Route: 048
     Dates: start: 20131101
  3. COUMADIN [Suspect]
     Indication: PRODUCT USED FOR UNKNOWN INDICATION
     Dosage: PATIENT TAKES PRODUCT DAILY AT 3MG FOR 5 DAYS AND 4 MG FOR 2 DAYS A WEEK.
  4. NORVASK [Concomitant]
     Indication: BLOOD PRESSURE INCREASED
  5. LIPITOR [Concomitant]
     Indication: BLOOD CHOLESTEROL
  6. FISH OIL [Concomitant]
     Indication: PRODUCT USED FOR UNKNOWN INDICATION

REACTIONS (1)
  - International normalised ratio increased [Not Recovered/Not Resolved]
